FAERS Safety Report 6985398-2 (Version None)
Quarter: 2010Q3

REPORT INFORMATION
  Report Type: 
  Country: None (occurrence: None)
  Receive Date: 20100915
  Receipt Date: 20100903
  Transmission Date: 20110219
  Serious: Yes (Hospitalization, Other)
  Sender: FDA-Public Use
  Company Number: BR-PFIZER INC-2010115946

PATIENT
  Sex: Female

DRUGS (10)
  1. CELECOXIB [Suspect]
     Indication: ANTIINFLAMMATORY THERAPY
     Dosage: UNK
     Route: 048
     Dates: start: 20100701, end: 20100801
  2. BENICAR [Suspect]
     Indication: HYPERTENSION
     Dosage: 20 MG, 1X/DAY
     Route: 048
     Dates: start: 20070401, end: 20100801
  3. BENICAR [Suspect]
     Dosage: 40 MG, 1X/DAY
     Route: 048
     Dates: start: 20100801
  4. ACETYLSALICYLIC ACID [Suspect]
     Indication: PROPHYLAXIS
     Dosage: 100 MG, UNK
     Route: 048
     Dates: start: 20100201
  5. ATENOLOL [Suspect]
     Indication: HYPERTENSION
     Dosage: 50 MG, UNK
     Route: 048
     Dates: start: 20090101, end: 20100801
  6. CLONAZEPAM [Concomitant]
     Indication: INSOMNIA
     Dosage: 2.5 MG, UNK
     Route: 065
  7. CLONAZEPAM [Concomitant]
     Indication: ANXIETY
  8. CLONAZEPAM [Concomitant]
     Indication: NERVOUSNESS
  9. PREDNISOLONE [Concomitant]
     Route: 065
  10. NORFLOXACIN [Concomitant]
     Route: 065

REACTIONS (16)
  - ANXIETY [None]
  - ARTERIOSCLEROSIS [None]
  - BRONCHITIS [None]
  - CATHETER PLACEMENT [None]
  - CYANOSIS [None]
  - DIZZINESS [None]
  - DRUG INEFFECTIVE [None]
  - FALL [None]
  - HEADACHE [None]
  - INSOMNIA [None]
  - ISCHAEMIA [None]
  - LUNG NEOPLASM [None]
  - MALAISE [None]
  - NERVOUSNESS [None]
  - PULMONARY GRANULOMA [None]
  - WEIGHT INCREASED [None]
